FAERS Safety Report 6562612-9 (Version None)
Quarter: 2010Q1

REPORT INFORMATION
  Report Type: 
  Country: None (occurrence: None)
  Receive Date: 20100130
  Receipt Date: 20091119
  Transmission Date: 20100710
  Serious: No
  Sender: FDA-Public Use
  Company Number: US-ABBOTT-09P-163-0609643-00

PATIENT
  Sex: Female
  Weight: 65.83 kg

DRUGS (12)
  1. HUMIRA [Suspect]
     Indication: RHEUMATOID ARTHRITIS
     Dates: start: 20090601
  2. LYRICA [Concomitant]
     Indication: FIBROMYALGIA
  3. COREG [Concomitant]
     Indication: HYPERTENSION
  4. ZANTAC [Concomitant]
     Indication: GASTROOESOPHAGEAL REFLUX DISEASE
  5. ARTHROTEC [Concomitant]
     Indication: RHEUMATOID ARTHRITIS
  6. SPIRIVA [Concomitant]
     Indication: CHRONIC OBSTRUCTIVE PULMONARY DISEASE
  7. SINEMET [Concomitant]
     Indication: RESTLESS LEGS SYNDROME
  8. CYMBACORT [Concomitant]
     Indication: CHRONIC OBSTRUCTIVE PULMONARY DISEASE
  9. RESTORIL [Concomitant]
     Indication: SLEEP DISORDER THERAPY
  10. ALBUTEROL [Concomitant]
     Indication: CHRONIC OBSTRUCTIVE PULMONARY DISEASE
  11. LORCET-HD [Concomitant]
     Indication: PAIN
  12. MUCINEX DM [Concomitant]
     Indication: CHRONIC OBSTRUCTIVE PULMONARY DISEASE

REACTIONS (2)
  - INJECTION SITE HAEMORRHAGE [None]
  - WRONG TECHNIQUE IN DRUG USAGE PROCESS [None]
